FAERS Safety Report 20460034 (Version 1)
Quarter: 2022Q1

REPORT INFORMATION
  Report Type: Report from Study
  Country: US (occurrence: US)
  Receive Date: 20220211
  Receipt Date: 20220211
  Transmission Date: 20220424
  Serious: Yes (Hospitalization)
  Sender: FDA-Public Use
  Company Number: US-JAZZ-2021-US-004437

PATIENT
  Age: 17 Year
  Sex: Female
  Weight: 53.9 kg

DRUGS (28)
  1. ASPARAGINASE ERWINIA CHRYSANTHEMI [Suspect]
     Active Substance: ASPARAGINASE ERWINIA CHRYSANTHEMI
     Dosage: 2.9 MILLILITER, 3X WEEKLY PER 2W COURSE
     Route: 030
     Dates: start: 20200805, end: 20200817
  2. ASPARAGINASE ERWINIA CHRYSANTHEMI [Suspect]
     Active Substance: ASPARAGINASE ERWINIA CHRYSANTHEMI
     Dosage: UNK, 3XWEEKLY PER 2W COURSE
     Dates: start: 20201109, end: 20210115
  3. ASPARAGINASE ERWINIA CHRYSANTHEMI [Suspect]
     Active Substance: ASPARAGINASE ERWINIA CHRYSANTHEMI
     Dosage: UNK, 3XWEEKLY PER 2W COURSE
     Dates: start: 20200205, end: 20210217
  4. ASPARAGINASE ERWINIA CHRYSANTHEMI [Suspect]
     Active Substance: ASPARAGINASE ERWINIA CHRYSANTHEMI
     Dosage: 3.0 MILLILITER, 3X WEEKLY PER 2W COURSE
     Route: 030
     Dates: start: 20210217, end: 20210305
  5. GABAPENTIN [Concomitant]
     Active Substance: GABAPENTIN
     Dosage: 300 MILLIGRAM, TID
     Route: 048
     Dates: start: 20201104
  6. DIPHENHYDRAMINE [Concomitant]
     Active Substance: DIPHENHYDRAMINE
     Dosage: 50 MILLIGRAM, PRN
     Route: 048
     Dates: start: 20201112
  7. ACETAMINOPHEN [Concomitant]
     Active Substance: ACETAMINOPHEN
     Dosage: 650 MILLIGRAM, PRN
     Route: 048
     Dates: start: 20201112
  8. ENOXAPARIN [Concomitant]
     Active Substance: ENOXAPARIN
     Dosage: 35 MILLIGRAM, BID
     Route: 058
     Dates: start: 20201129
  9. KEPPRA [Concomitant]
     Active Substance: LEVETIRACETAM
     Dosage: 1000 MILLIGRAM, BID
     Route: 048
     Dates: start: 20201216
  10. MEDROXYPROGESTERONE ACETATE [Concomitant]
     Active Substance: MEDROXYPROGESTERONE ACETATE
     Dosage: 10 MILLIGRAM, QD
     Route: 048
     Dates: start: 20200808
  11. METOCLOPRAMIDE HYDROCHLORIDE [Concomitant]
     Active Substance: METOCLOPRAMIDE HYDROCHLORIDE
     Dosage: 20 MILLIGRAM, PRN
     Route: 048
     Dates: start: 20200606
  12. ONDANSETRON [Concomitant]
     Active Substance: ONDANSETRON
     Dosage: 8 MILLIGRAM, PRN
     Route: 048
     Dates: start: 20200406
  13. SCOPOLAMINE PCH [Concomitant]
     Dosage: 1.5 MILLIGRAM, PRN
     Route: 062
     Dates: start: 20200421
  14. SULFAMETHOXAZOLE AND TRIMETHOPRIM [Concomitant]
     Active Substance: SULFAMETHOXAZOLE\TRIMETHOPRIM
     Dosage: 120 MILLIGRAM, BID MON AND TUES ONLY
     Route: 048
     Dates: start: 20200427
  15. VINCRISTINE [Concomitant]
     Active Substance: VINCRISTINE
     Dosage: 2 MILLIGRAM, SINGLE
     Route: 042
     Dates: start: 20210224, end: 20210224
  16. VINCRISTINE [Concomitant]
     Active Substance: VINCRISTINE
     Dosage: 2 MILLIGRAM, SINGLE
     Route: 042
     Dates: start: 20210305, end: 20210305
  17. METHOTREXATE [Concomitant]
     Active Substance: METHOTREXATE
     Dosage: 130 MILLIGRAM, SINGLE
     Route: 042
     Dates: start: 20210224, end: 20210224
  18. METHOTREXATE [Concomitant]
     Active Substance: METHOTREXATE
     Dosage: 15 MILLIGRAM, SINGLE
     Route: 037
     Dates: start: 20210305, end: 20210305
  19. METHOTREXATE [Concomitant]
     Active Substance: METHOTREXATE
     Dosage: 205 MILLIGRAM, SINGLE
     Route: 042
     Dates: start: 20210305, end: 20210305
  20. OLANZAPINE [Concomitant]
     Active Substance: OLANZAPINE
     Dosage: 2.5 MILLIGRAM, SINGLE
     Route: 048
     Dates: start: 20210227, end: 20210227
  21. LORAZEPAM [Concomitant]
     Active Substance: LORAZEPAM
     Dosage: 0.5 MILLIGRAM, QOD
     Route: 042
     Dates: start: 20210226, end: 20210228
  22. LORAZEPAM [Concomitant]
     Active Substance: LORAZEPAM
     Dosage: 0.5 MILLIGRAM, SINGLE
     Route: 048
     Dates: start: 20210228, end: 20210228
  23. CEFTAZIDIME [Concomitant]
     Active Substance: CEFTAZIDIME
     Dosage: 2000 MILLIGRAM, SINGLE
     Route: 042
     Dates: start: 20210308, end: 20210308
  24. CALCIUM GLUCONATE [Concomitant]
     Active Substance: CALCIUM GLUCONATE
     Dosage: 3000 MILLIGRAM, SINGLE
     Route: 042
     Dates: start: 20210308, end: 20210308
  25. CEFTRIAXONE [Concomitant]
     Active Substance: CEFTRIAXONE
     Dosage: 1 MILLIGRAM, SINGLE
     Route: 042
     Dates: start: 20210308
  26. NALBUPHINE [Concomitant]
     Active Substance: NALBUPHINE
     Dosage: 2.8 MILLIGRAM, PRN
     Route: 042
     Dates: start: 20210308
  27. RINGER LACTATED [Concomitant]
     Dosage: 1000 MILLILITER, PRN
     Route: 042
     Dates: start: 20210308
  28. DEXTROSE AND SODIUM CHLORIDE [Concomitant]
     Active Substance: DEXTROSE MONOHYDRATE\SODIUM CHLORIDE
     Dosage: 1000 MILLILITER, PRN
     Route: 042
     Dates: start: 20210308

REACTIONS (3)
  - Pancreatitis [Recovering/Resolving]
  - Pulmonary embolism [Recovering/Resolving]
  - Pulmonary oedema [Recovering/Resolving]

NARRATIVE: CASE EVENT DATE: 20210308
